FAERS Safety Report 25126673 (Version 1)
Quarter: 2025Q1

REPORT INFORMATION
  Report Type: Spontaneous
  Country: PT (occurrence: PT)
  Receive Date: 20250327
  Receipt Date: 20250327
  Transmission Date: 20250409
  Serious: Yes (Other)
  Sender: AUROBINDO
  Company Number: PT-INFARMED-A202502-879

PATIENT
  Age: 55 Year
  Sex: Male
  Weight: 120 kg

DRUGS (2)
  1. LEVETIRACETAM [Suspect]
     Active Substance: LEVETIRACETAM
     Indication: Epilepsy
     Dosage: 1.5 GRAM, TWO TIMES A DAY (DE 14/2 A 17/2 1,5 G 12/12H)
     Route: 042
     Dates: start: 20250214, end: 20250217
  2. LEVETIRACETAM [Suspect]
     Active Substance: LEVETIRACETAM
     Indication: Haemorrhagic stroke
     Dosage: 1 GRAM, TWO TIMES A DAY (18/2 A 19/2 1G 12/12H IV)
     Route: 042
     Dates: start: 20250218, end: 20250219

REACTIONS (2)
  - Renal impairment [Recovering/Resolving]
  - Rash maculo-papular [Recovering/Resolving]

NARRATIVE: CASE EVENT DATE: 20250217
